FAERS Safety Report 10842455 (Version 3)
Quarter: 2015Q1

REPORT INFORMATION
  Report Type: Spontaneous
  Country: GB (occurrence: GB)
  Receive Date: 20150220
  Receipt Date: 20150311
  Transmission Date: 20150721
  Serious: Yes (Life-Threatening)
  Sender: FDA-Public Use
  Company Number: GB-TEVA-540638ACC

PATIENT
  Age: 59 Year
  Sex: Male
  Weight: 82 kg

DRUGS (11)
  1. AVASTIN [Suspect]
     Active Substance: BEVACIZUMAB
     Indication: GASTRIC CANCER
     Dosage: DATE OF MOST RECENT DOSE ADMINISTRATION 23/AUG/2013RECENT DOSE: 625 MG
     Route: 042
     Dates: start: 20130802
  2. DOMPERIDONE [Concomitant]
     Active Substance: DOMPERIDONE
     Dosage: 10-30 MG
     Route: 048
  3. XELODA [Suspect]
     Active Substance: CAPECITABINE
     Indication: GASTRIC CANCER
     Dosage: DATE OF MOST RECENT DOSE ADMINISTERED: 01/SEP/2013RECENT DOSE: 2500 MG
     Route: 048
     Dates: start: 20130802
  4. METOCLOPRAMIDE. [Concomitant]
     Active Substance: METOCLOPRAMIDE
     Route: 048
  5. CISPLATIN. [Suspect]
     Active Substance: CISPLATIN
     Indication: GASTRIC CANCER
     Dosage: DATE OF MOST RECENT DOSE ADMINISTARTION 23/AUG/2013RECENT DOSE: 120 MG
     Route: 042
     Dates: start: 20130802
  6. LANSOPRAZOLE. [Concomitant]
     Active Substance: LANSOPRAZOLE
     Route: 048
  7. LOPERAMIDE [Concomitant]
     Active Substance: LOPERAMIDE
     Route: 048
  8. ONDANSETRON [Concomitant]
     Active Substance: ONDANSETRON
     Route: 048
  9. ACIDEX [Concomitant]
     Route: 048
  10. EPIRUBICIN [Suspect]
     Active Substance: EPIRUBICIN
     Indication: GASTRIC CANCER
     Dosage: DATE OF MOST RECENT DOSE ADMINISTRATION 23/AUG/2013?RECENT DOSE: 100 MG
     Route: 042
     Dates: start: 20130802
  11. CYCLIZINE [Concomitant]
     Active Substance: CYCLIZINE
     Route: 048

REACTIONS (1)
  - Pulmonary embolism [Recovered/Resolved]

NARRATIVE: CASE EVENT DATE: 20130930
